FAERS Safety Report 4631348-3 (Version None)
Quarter: 2005Q2

REPORT INFORMATION
  Report Type: 
  Country: None (occurrence: None)
  Receive Date: 20050406
  Receipt Date: 20050317
  Transmission Date: 20051028
  Serious: Yes (Hospitalization, Other)
  Sender: FDA-Public Use
  Company Number: USA050393569

PATIENT
  Age: 81 Year
  Sex: Female

DRUGS (3)
  1. FORTEO [Suspect]
     Indication: OSTEOPOROSIS
     Dosage: 20 UG DAY
     Dates: start: 20030401, end: 20040501
  2. CALCIUM GLUCONATE [Concomitant]
  3. MAGNESIUM [Concomitant]

REACTIONS (3)
  - BODY HEIGHT DECREASED [None]
  - BREAST CANCER IN SITU [None]
  - BREAST MICROCALCIFICATION [None]
